FAERS Safety Report 7528547-X (Version None)
Quarter: 2011Q2

REPORT INFORMATION
  Report Type: 
  Country: None (occurrence: None)
  Receive Date: 20110607
  Receipt Date: 20100802
  Transmission Date: 20111010
  Serious: No
  Sender: FDA-Public Use
  Company Number: US-ASTRAZENECA-2010SE37193

PATIENT
  Sex: Female

DRUGS (4)
  1. PRILOSEC OTC [Suspect]
     Dosage: 1 TABLET, 2 /DAY
     Route: 048
  2. PRILOSEC OTC [Suspect]
     Dosage: 1 TABLET, 1 /DAY
     Route: 048
  3. VYTORIN [Concomitant]
     Dosage: UNKNOWN
  4. BLOOD PRESSURE MEDICATION [Concomitant]
     Dosage: UNKNOWN

REACTIONS (2)
  - PAIN IN EXTREMITY [None]
  - MYALGIA [None]
